FAERS Safety Report 5535832-X (Version None)
Quarter: 2007Q4

REPORT INFORMATION
  Report Type: 
  Country: None (occurrence: None)
  Receive Date: 20071206
  Receipt Date: 20071205
  Transmission Date: 20080405
  Serious: Yes (Hospitalization)
  Sender: FDA-Public Use
  Company Number: D0055284A

PATIENT
  Age: 29 Year
  Sex: Male
  Weight: 90 kg

DRUGS (3)
  1. ELONTRIL [Suspect]
     Route: 048
  2. INVEGA [Suspect]
     Route: 065
  3. NEUROCIL [Suspect]
     Route: 065

REACTIONS (3)
  - SOMNOLENCE [None]
  - SUICIDE ATTEMPT [None]
  - TACHYCARDIA [None]
